FAERS Safety Report 5831460-7 (Version None)
Quarter: 2008Q3

REPORT INFORMATION
  Report Type: 
  Country: None (occurrence: None)
  Receive Date: 20080730
  Receipt Date: 20080721
  Transmission Date: 20090109
  Serious: Yes (Hospitalization, Disabling)
  Sender: FDA-Public Use
  Company Number: 163-20785-08071326

PATIENT
  Sex: Male

DRUGS (2)
  1. THALOMID [Suspect]
     Indication: MULTIPLE MYELOMA
     Dosage: 50 MG, 1 IN 1 D, ORAL;  50 MG-100 MG, DAILY, ORAL
     Route: 048
     Dates: start: 20071029, end: 20080101
  2. THALOMID [Suspect]
     Indication: MULTIPLE MYELOMA
     Dosage: 50 MG, 1 IN 1 D, ORAL;  50 MG-100 MG, DAILY, ORAL
     Route: 048
     Dates: start: 20080311, end: 20080701

REACTIONS (5)
  - ABASIA [None]
  - ILLITERACY [None]
  - MUSCLE INJURY [None]
  - NERVE INJURY [None]
  - TREMOR [None]
